FAERS Safety Report 9328805 (Version 1)
Quarter: 2013Q2

REPORT INFORMATION
  Report Type: Spontaneous
  Country: US (occurrence: US)
  Receive Date: 20130604
  Receipt Date: 20130604
  Transmission Date: 20140414
  Serious: No
  Sender: FDA-Public Use
  Company Number: US-SANOFI-AVENTIS-2013SA014224

PATIENT
  Age: 64 Year
  Sex: Female

DRUGS (4)
  1. LANTUS [Suspect]
     Indication: TYPE 2 DIABETES MELLITUS
     Dates: start: 2003
  2. LANTUS SOLOSTAR [Suspect]
     Indication: TYPE 2 DIABETES MELLITUS
     Dosage: DOSE:60 UNIT(S)
     Route: 051
     Dates: start: 20130211
  3. SOLOSTAR [Suspect]
     Dates: start: 20130211
  4. ALL OTHER THERAPEUTIC PRODUCTS [Suspect]

REACTIONS (3)
  - Visual acuity reduced [Not Recovered/Not Resolved]
  - Feeling abnormal [Unknown]
  - Underdose [Unknown]
